FAERS Safety Report 7320525-9 (Version None)
Quarter: 2011Q1

REPORT INFORMATION
  Report Type: 
  Country: None (occurrence: None)
  Receive Date: 20110228
  Receipt Date: 20110217
  Transmission Date: 20110831
  Serious: Yes (Other)
  Sender: FDA-Public Use
  Company Number: ES-JNJFOC-20110204591

PATIENT
  Sex: Male
  Weight: 32 kg

DRUGS (2)
  1. RUBIFEN [Suspect]
     Indication: ATTENTION DEFICIT/HYPERACTIVITY DISORDER
     Route: 065
  2. CONCERTA [Suspect]
     Indication: ATTENTION DEFICIT/HYPERACTIVITY DISORDER
     Dosage: APPROXIMATELY 2.5 YEARS AGO
     Route: 048

REACTIONS (3)
  - VISUAL ACUITY REDUCED [None]
  - ASTIGMATISM [None]
  - EYE PRURITUS [None]
